FAERS Safety Report 8239878-2 (Version None)
Quarter: 2012Q1

REPORT INFORMATION
  Report Type: 
  Country: None (occurrence: None)
  Receive Date: 20120328
  Receipt Date: 20120322
  Transmission Date: 20120608
  Serious: Yes (Hospitalization, Other)
  Sender: FDA-Public Use
  Company Number: PHEH2011US012762

PATIENT
  Sex: Male

DRUGS (2)
  1. LASIX [Suspect]
  2. GLEEVEC [Suspect]
     Indication: GASTROINTESTINAL STROMAL TUMOUR
     Dosage: 400 MG, DAILY
     Route: 048
     Dates: start: 20111229

REACTIONS (4)
  - DISEASE COMPLICATION [None]
  - DEAFNESS [None]
  - FALL [None]
  - DEHYDRATION [None]
